FAERS Safety Report 8557351-9 (Version None)
Quarter: 2012Q3

REPORT INFORMATION
  Report Type: 
  Country: None (occurrence: None)
  Receive Date: 20120801
  Receipt Date: 20120726
  Transmission Date: 20120928
  Serious: Yes (Hospitalization, Other)
  Sender: FDA-Public Use
  Company Number: JP-PFIZER INC-2012153682

PATIENT
  Age: 4 Year
  Sex: Male
  Weight: 16.5 kg

DRUGS (2)
  1. GENOTROPIN [Suspect]
     Indication: BODY HEIGHT BELOW NORMAL
     Dosage: 0.6MG OR 0.75MG, 1X/DAY
     Route: 058
     Dates: start: 20120622, end: 20120625
  2. AMOXICILLIN [Suspect]
     Indication: PYREXIA
     Dosage: 0.83 G, 1X/DAY
     Route: 048
     Dates: start: 20120626, end: 20120626

REACTIONS (1)
  - FEBRILE CONVULSION [None]
